FAERS Safety Report 16454903 (Version 1)
Quarter: 2019Q2

REPORT INFORMATION
  Report Type: Spontaneous
  Country: ES (occurrence: ES)
  Receive Date: 20190619
  Receipt Date: 20190619
  Transmission Date: 20190711
  Serious: Yes (Hospitalization)
  Sender: FDA-Public Use
  Company Number: PHHY2019ES137833

PATIENT
  Age: 15 Year
  Sex: Female

DRUGS (2)
  1. RISPERIDONE. [Suspect]
     Active Substance: RISPERIDONE
     Indication: PSYCHOTIC SYMPTOM
     Dosage: DOSAGE FORM: UNSPECIFIED
     Route: 048
  2. PALIPERIDONE PALMITATE [Suspect]
     Active Substance: PALIPERIDONE PALMITATE
     Indication: PSYCHOTIC SYMPTOM
     Dosage: DOSAGE FORM: OROS (ORAL OSMOTIC) THERAPEUTIC SYSTEM TABLET
     Route: 048

REACTIONS (2)
  - Extrapyramidal disorder [Recovering/Resolving]
  - Schizophreniform disorder [Recovering/Resolving]
